FAERS Safety Report 17332808 (Version 1)
Quarter: 2020Q1

REPORT INFORMATION
  Report Type: Spontaneous
  Country: DE (occurrence: DE)
  Receive Date: 20200128
  Receipt Date: 20200128
  Transmission Date: 20200409
  Serious: Yes (Hospitalization, Disabling, Other)
  Sender: FDA-Public Use
  Company Number: DE-ASTRAZENECA-2020SE12356

PATIENT
  Age: 44 Year
  Sex: Male
  Weight: 130 kg

DRUGS (11)
  1. MEPOLIZUMAB [Concomitant]
     Active Substance: MEPOLIZUMAB
  2. AIRFLUSAL [Concomitant]
     Active Substance: FLUTICASONE FUROATE\SALMETEROL XINAFOATE
     Dosage: 50/500 ?G (1,1,1)
  3. FASENRA [Concomitant]
     Active Substance: BENRALIZUMAB
     Dates: start: 201912
  4. MONTELUKAST [Concomitant]
     Active Substance: MONTELUKAST SODIUM
     Dosage: 10 MG
  5. OXIS [Concomitant]
     Active Substance: FORMOTEROL FUMARATE
     Dosage: 12 ?G (1,0,1)
  6. SALBUTAMOL [Concomitant]
     Active Substance: ALBUTEROL
     Dosage: (2,0,0)
  7. PREDNISOLON [Concomitant]
     Active Substance: PREDNISOLONE
     Dosage: (25 MG-0 MG-5 MG) NEVER LESS THAN 15 MG IN WINTER, NEVER LESS THAN 7.5 MG IN SUMMER
  8. SYMBICORT [Suspect]
     Active Substance: BUDESONIDE\FORMOTEROL FUMARATE DIHYDRATE
     Indication: ASTHMA
     Dosage: 320/9 UG THREE TIMES A DAY
     Route: 055
  9. CORTICOSTEROID [Concomitant]
     Active Substance: CORTICOSTEROID NOS
  10. BERODUAL [Concomitant]
     Active Substance: FENOTEROL HYDROBROMIDE\IPRATROPIUM BROMIDE
     Indication: FEELING ABNORMAL
  11. SPIRIVA [Concomitant]
     Active Substance: TIOTROPIUM BROMIDE MONOHYDRATE
     Dosage: (2,0,0)

REACTIONS (19)
  - Infection [Unknown]
  - Pulmonary function test abnormal [Unknown]
  - Eosinophilia [Unknown]
  - Fractional exhaled nitric oxide increased [Unknown]
  - Occupational asthma [Unknown]
  - Asthma [Unknown]
  - Headache [Unknown]
  - Sensitivity to weather change [Unknown]
  - Somnolence [Unknown]
  - Osteoarthritis [Unknown]
  - Dyspnoea [Unknown]
  - Hypersomnia [Unknown]
  - Forced expiratory volume decreased [Unknown]
  - Arthralgia [Unknown]
  - Nocturnal dyspnoea [Unknown]
  - Snoring [Unknown]
  - Weight decreased [Recovering/Resolving]
  - General physical health deterioration [Unknown]
  - Hypoxia [Unknown]

NARRATIVE: CASE EVENT DATE: 2017
